FAERS Safety Report 17734653 (Version 1)
Quarter: 2020Q2

REPORT INFORMATION
  Report Type: Spontaneous
  Country: US (occurrence: US)
  Receive Date: 20200501
  Receipt Date: 20200501
  Transmission Date: 20200714
  Serious: Yes (Hospitalization)
  Sender: FDA-Public Use
  Company Number: None

PATIENT
  Age: 11 Year
  Sex: Female
  Weight: 50.2 kg

DRUGS (4)
  1. HUMIRA [Suspect]
     Active Substance: ADALIMUMAB
     Indication: CHRONIC RECURRENT MULTIFOCAL OSTEOMYELITIS
     Dosage: ?          OTHER FREQUENCY:WEEKLY;?
     Route: 058
     Dates: start: 20190412
  2. PREDNISONE. [Concomitant]
     Active Substance: PREDNISONE
     Dates: start: 20200407
  3. INDOMETHACIN. [Concomitant]
     Active Substance: INDOMETHACIN
     Dates: start: 20190226
  4. ALENDRONATE [Suspect]
     Active Substance: ALENDRONATE SODIUM
     Dates: start: 20200303

REACTIONS (11)
  - Mastication disorder [None]
  - Swelling face [None]
  - Wound secretion [None]
  - Abscess [None]
  - Bacterial infection [None]
  - Abdominal pain upper [None]
  - Purulence [None]
  - Rash [None]
  - Bone pain [None]
  - Therapeutic response shortened [None]
  - Diarrhoea [None]

NARRATIVE: CASE EVENT DATE: 20200429
